FAERS Safety Report 7569843-X (Version None)
Quarter: 2011Q2

REPORT INFORMATION
  Report Type: 
  Country: None (occurrence: None)
  Receive Date: 20110621
  Receipt Date: 20110621
  Transmission Date: 20111010
  Serious: Yes (Other)
  Sender: FDA-Public Use
  Company Number: None

PATIENT
  Sex: Female
  Weight: 49.8957 kg

DRUGS (1)
  1. CLOTRIMAZOLE [Suspect]
     Indication: GLOSSODYNIA
     Dosage: DISSOLVE ONE 5 X DAY 14 DAYS
     Dates: start: 20110214, end: 20110403

REACTIONS (1)
  - SOMNOLENCE [None]
